FAERS Safety Report 6703508-9 (Version None)
Quarter: 2010Q2

REPORT INFORMATION
  Report Type: 
  Country: None (occurrence: None)
  Receive Date: 20100430
  Receipt Date: 20100419
  Transmission Date: 20101027
  Serious: Yes (Other)
  Sender: FDA-Public Use
  Company Number: PHHY2010US25298

PATIENT
  Sex: Female

DRUGS (9)
  1. RECLAST [Suspect]
     Indication: OSTEOPOROSIS
     Dosage: UNK
     Route: 042
     Dates: start: 20100401
  2. BONIVA [Suspect]
     Route: 048
  3. TYLENOL (CAPLET) [Suspect]
  4. TALWIN NX [Suspect]
  5. ACTONEL [Suspect]
  6. LORAZEPAM [Concomitant]
  7. MULTI-VITAMINS [Concomitant]
  8. CALCIUM [Concomitant]
     Dosage: UNK
  9. VITAMIN D [Concomitant]

REACTIONS (17)
  - ABDOMINAL DISCOMFORT [None]
  - BACK PAIN [None]
  - BEDRIDDEN [None]
  - BONE PAIN [None]
  - CHILLS [None]
  - DIARRHOEA [None]
  - DIZZINESS [None]
  - DYSPNOEA [None]
  - HEADACHE [None]
  - INFLUENZA [None]
  - MALAISE [None]
  - NAUSEA [None]
  - NECK PAIN [None]
  - NERVE INJURY [None]
  - PAIN [None]
  - SPONDYLITIS [None]
  - VOMITING [None]
